FAERS Safety Report 5372231-8 (Version None)
Quarter: 2007Q2

REPORT INFORMATION
  Report Type: 
  Country: None (occurrence: None)
  Receive Date: 20070615
  Receipt Date: 20070404
  Transmission Date: 20071010
  Serious: No
  Sender: FDA-Public Use
  Company Number: SP01200

PATIENT
  Sex: Female

DRUGS (1)
  1. XIFAXAN [Suspect]
     Indication: BACTERIAL INFECTION
     Dosage: 600 MG (200 MG, 3 IN 1 D), ORA
     Route: 048

REACTIONS (1)
  - DRUG INEFFECTIVE [None]
